FAERS Safety Report 6686030-8 (Version None)
Quarter: 2010Q2

REPORT INFORMATION
  Report Type: 
  Country: None (occurrence: None)
  Receive Date: 20100419
  Receipt Date: 20100408
  Transmission Date: 20101027
  Serious: Yes (Hospitalization)
  Sender: FDA-Public Use
  Company Number: ES-JNJFOC-20100402671

PATIENT
  Age: 57 Year
  Sex: Male

DRUGS (7)
  1. REMICADE [Suspect]
     Indication: PUSTULAR PSORIASIS
     Dosage: INITIAL DOSE AT 0, 2 AND 6 WEEKS
     Route: 042
  2. REMICADE [Suspect]
     Route: 042
  3. REMICADE [Suspect]
     Dosage: 0 AND 2 WEEKS
     Route: 042
  4. REMICADE [Suspect]
     Indication: PSORIATIC ARTHROPATHY
     Dosage: 0 AND 2 WEEKS
     Route: 042
  5. REMICADE [Suspect]
     Route: 042
  6. REMICADE [Suspect]
     Dosage: INITIAL DOSE AT 0, 2 AND 6 WEEKS
     Route: 042
  7. METHOTREXATE [Concomitant]

REACTIONS (3)
  - BRONCHITIS [None]
  - CHRONIC OBSTRUCTIVE PULMONARY DISEASE [None]
  - PUSTULAR PSORIASIS [None]
